FAERS Safety Report 12893503 (Version 1)
Quarter: 2016Q4

REPORT INFORMATION
  Report Type: Spontaneous
  Country: GB (occurrence: GB)
  Receive Date: 20161028
  Receipt Date: 20161028
  Transmission Date: 20170207
  Serious: Yes (Death, Hospitalization)
  Sender: FDA-Public Use
  Company Number: GB-SA-2016SA192374

PATIENT
  Age: 3 Year
  Sex: Female

DRUGS (1)
  1. MYOZYME [Suspect]
     Active Substance: ALGLUCOSIDASE ALFA
     Indication: GLYCOGEN STORAGE DISEASE TYPE II
     Route: 041
     Dates: end: 20160921

REACTIONS (5)
  - Cardiac arrest [Unknown]
  - Disease progression [Fatal]
  - Respiratory arrest [Fatal]
  - Lower respiratory tract infection [Fatal]
  - Brain injury [Unknown]

NARRATIVE: CASE EVENT DATE: 2015
